FAERS Safety Report 7298402-1 (Version None)
Quarter: 2011Q1

REPORT INFORMATION
  Report Type: 
  Country: None (occurrence: None)
  Receive Date: 20110217
  Receipt Date: 20100428
  Transmission Date: 20110831
  Serious: No
  Sender: FDA-Public Use
  Company Number: US-PFIZER INC-2009313044

PATIENT
  Sex: Female
  Weight: 62.6 kg

DRUGS (4)
  1. XALATAN [Suspect]
     Indication: INTRAOCULAR PRESSURE INCREASED
     Dosage: 1 GTT, UNK
     Route: 047
     Dates: start: 20100101
  2. TIMOLOL [Suspect]
     Indication: GLAUCOMA
     Dosage: UNK
     Dates: start: 20091101, end: 20091217
  3. XALATAN [Suspect]
     Indication: GLAUCOMA
  4. TRAVATAN [Concomitant]
     Dosage: UNK

REACTIONS (4)
  - ABNORMAL SENSATION IN EYE [None]
  - OCULAR HYPERAEMIA [None]
  - DRUG INEFFECTIVE [None]
  - EYE IRRITATION [None]
